FAERS Safety Report 20877727 (Version 1)
Quarter: 2022Q2

REPORT INFORMATION
  Report Type: Spontaneous
  Country: US (occurrence: None)
  Receive Date: 20220525
  Receipt Date: 20220525
  Transmission Date: 20220721
  Serious: No
  Sender: FDA-Public Use
  Company Number: None

PATIENT
  Age: 67 Year
  Sex: Female

DRUGS (14)
  1. INGREZZA [Suspect]
     Active Substance: VALBENAZINE
     Indication: Dyskinesia
     Dosage: FREQUENCY : DAILY;?
     Route: 048
     Dates: start: 20220427, end: 20220519
  2. FLUOXETINE [Concomitant]
     Active Substance: FLUOXETINE HYDROCHLORIDE
  3. METOPROLOL SUCCINATE [Concomitant]
     Active Substance: METOPROLOL SUCCINATE
  4. VITAMINS [Concomitant]
     Active Substance: VITAMINS
  5. VITAMIN E [Concomitant]
     Active Substance: .ALPHA.-TOCOPHEROL
  6. FISH OIL [Concomitant]
     Active Substance: FISH OIL
  7. VITAMIN B COMPLEX [Concomitant]
     Active Substance: CYANOCOBALAMIN\DEXPANTHENOL\NIACINAMIDE\PYRIDOXINE HYDROCHLORIDE\RIBOFLAVIN 5^-PHOSPHATE SODIUM\THIA
  8. ELIQUIS [Concomitant]
     Active Substance: APIXABAN
  9. FUROSEMIDE [Concomitant]
     Active Substance: FUROSEMIDE
  10. FOLIC ACID [Concomitant]
     Active Substance: FOLIC ACID
  11. LEVOTHYROXINE [Concomitant]
     Active Substance: LEVOTHYROXINE
  12. ATIVAN [Concomitant]
     Active Substance: LORAZEPAM
  13. LAMICTAL [Concomitant]
     Active Substance: LAMOTRIGINE
  14. ZOLPIDEM [Concomitant]
     Active Substance: ZOLPIDEM TARTRATE

REACTIONS (2)
  - Dyskinesia [None]
  - Condition aggravated [None]

NARRATIVE: CASE EVENT DATE: 20220510
